FAERS Safety Report 14977989 (Version 1)
Quarter: 2018Q2

REPORT INFORMATION
  Report Type: Spontaneous
  Country: US (occurrence: US)
  Receive Date: 20180606
  Receipt Date: 20180606
  Transmission Date: 20180711
  Serious: No
  Sender: FDA-Public Use
  Company Number: US-PFIZER INC-2018103316

PATIENT
  Age: 4 Month
  Sex: Male

DRUGS (1)
  1. EUCRISA [Suspect]
     Active Substance: CRISABOROLE
     Indication: DERMATITIS ATOPIC
     Dosage: UNK, 2X/DAY; (APPLY TO AFFECTED AREA)
     Route: 061

REACTIONS (3)
  - Condition aggravated [Unknown]
  - Drug administered to patient of inappropriate age [Unknown]
  - Dermatitis atopic [Unknown]
